FAERS Safety Report 8616728-3 (Version None)
Quarter: 2012Q3

REPORT INFORMATION
  Report Type: 
  Country: None (occurrence: None)
  Receive Date: 20120823
  Receipt Date: 20120817
  Transmission Date: 20120928
  Serious: Yes (Other)
  Sender: FDA-Public Use
  Company Number: AU-PFIZER INC-2012203640

PATIENT
  Age: 33 Year

DRUGS (2)
  1. AZITHROMYCIN [Suspect]
     Indication: PRODUCT USED FOR UNKNOWN INDICATION
     Dosage: 500 MG, 1X/DAY
     Route: 042
     Dates: start: 20120521, end: 20120527
  2. AMIODARONE HYDROCHLORIDE [Suspect]
     Indication: PRODUCT USED FOR UNKNOWN INDICATION
     Dosage: 960 MG, UNKNOWN.
     Route: 042
     Dates: start: 20120522, end: 20120528

REACTIONS (4)
  - ELECTROCARDIOGRAM QT PROLONGED [None]
  - RESPIRATORY RATE INCREASED [None]
  - HEART RATE INCREASED [None]
  - MEAN ARTERIAL PRESSURE DECREASED [None]
